FAERS Safety Report 7693109-0 (Version None)
Quarter: 2011Q3

REPORT INFORMATION
  Report Type: 
  Country: None (occurrence: None)
  Receive Date: 20110819
  Receipt Date: 20110809
  Transmission Date: 20111222
  Serious: Yes (Other)
  Sender: FDA-Public Use
  Company Number: US-RANBAXY-2011US-46723

PATIENT
  Sex: Male

DRUGS (9)
  1. TENOFOVIR DISOPROXIL FUMARATE [Suspect]
     Indication: ANTIRETROVIRAL THERAPY
     Dosage: UNK
     Route: 065
  2. ZIDOVUDINE [Suspect]
     Indication: ANTIRETROVIRAL THERAPY
     Dosage: UNK, UNK
     Route: 065
  3. LAMIVUDINE [Suspect]
     Indication: ANTIRETROVIRAL THERAPY
     Dosage: UNK
     Route: 065
  4. LOPINAVIR [Suspect]
     Indication: ANTIRETROVIRAL THERAPY
     Dosage: UNK
     Route: 065
  5. ATAZANAVIR [Suspect]
     Indication: ANTIRETROVIRAL THERAPY
     Dosage: UNK
     Route: 065
  6. ABACAVIR SULFATE [Suspect]
     Indication: ANTIRETROVIRAL THERAPY
     Route: 065
  7. RITONAVIR [Suspect]
     Indication: ANTIRETROVIRAL THERAPY
     Dosage: UNK
     Route: 065
  8. STAVUDINE [Suspect]
     Indication: ANTIRETROVIRAL THERAPY
     Dosage: UNK
     Route: 065
  9. DIDANOSINE [Suspect]
     Indication: ANTIRETROVIRAL THERAPY
     Dosage: UNK
     Route: 065

REACTIONS (2)
  - GLUCOSE TOLERANCE IMPAIRED [None]
  - TYPE 2 DIABETES MELLITUS [None]
